FAERS Safety Report 4862558-8 (Version None)
Quarter: 2005Q4

REPORT INFORMATION
  Report Type: 
  Country: None (occurrence: None)
  Receive Date: 20051221
  Receipt Date: 20051209
  Transmission Date: 20060501
  Serious: Yes (Hospitalization)
  Sender: FDA-Public Use
  Company Number: US-GLAXOSMITHKLINE-B0403338A

PATIENT
  Age: 24 Year
  Sex: Female

DRUGS (5)
  1. BLINDED VACCINE [Suspect]
     Route: 030
     Dates: start: 20051101, end: 20051101
  2. WELLBUTRIN [Suspect]
     Dosage: 300MG PER DAY
     Route: 048
     Dates: start: 20050408
  3. ELAVIL [Suspect]
     Dosage: 30MG PER DAY
     Route: 048
     Dates: start: 20051027
  4. PROZAC [Suspect]
     Dosage: 40MG PER DAY
     Route: 048
     Dates: start: 20051027
  5. NUVARING [Suspect]
     Dates: start: 20051012

REACTIONS (4)
  - ABDOMINAL PAIN UPPER [None]
  - BILE DUCT STONE [None]
  - CHOLECYSTITIS ACUTE [None]
  - HYPERBILIRUBINAEMIA [None]
